FAERS Safety Report 8477653-4 (Version None)
Quarter: 2012Q2

REPORT INFORMATION
  Report Type: 
  Country: None (occurrence: None)
  Receive Date: 20120629
  Receipt Date: 20120619
  Transmission Date: 20120825
  Serious: Yes (Death, Hospitalization, Other)
  Sender: FDA-Public Use
  Company Number: US-BAYER-2012-006411

PATIENT
  Age: 39 Year
  Sex: Female
  Weight: 68.027 kg

DRUGS (12)
  1. IBUPROFEN (ADVIL) [Concomitant]
  2. VICODIN [Concomitant]
  3. AMOXICILLIN [Concomitant]
     Dosage: 875-125MG 1 TABLET
     Route: 048
  4. PREDNISONE [Concomitant]
     Dosage: 20 MG, 2 TABLETS DAILY
     Route: 048
  5. PREDNISONE [Concomitant]
     Dosage: 40 MG, UNK
  6. ONDANSETRON HYDROCHLORIDE [Concomitant]
     Dosage: 4 MG, UNK
  7. BLOOD PRESSURE MEDICATION (NOS) [Concomitant]
     Indication: HYPERTENSION
     Dosage: UNK
     Dates: start: 20080101, end: 20100501
  8. LISINOPRIL [Concomitant]
     Dosage: 10 MG, 1 TABLET AT HS
     Route: 048
  9. YASMIN [Suspect]
     Indication: CONTRACEPTION
     Dosage: UNK
     Dates: start: 20061001, end: 20080701
  10. DROSPIRENONE AND ETHINYL ESTRADIOL [Suspect]
     Indication: CONTRACEPTION
     Dosage: UNK
     Dates: start: 20080801, end: 20100501
  11. HYDROCODONE BITARTRATE + ACETAMINOPHEN [Concomitant]
     Indication: PAIN
     Dosage: 5/500MG 1 TABLET EVERY 6 HOURS AS NEEDED
     Route: 048
  12. PRILOSEC [Concomitant]

REACTIONS (8)
  - TRUNCUS COELIACUS THROMBOSIS [None]
  - CHOLECYSTECTOMY [None]
  - SPLENIC VEIN THROMBOSIS [None]
  - ABDOMINAL PAIN [None]
  - INJURY [None]
  - CHOLECYSTITIS CHRONIC [None]
  - MESENTERIC ARTERY THROMBOSIS [None]
  - ARTERIAL THROMBOSIS [None]
